FAERS Safety Report 7366342-5 (Version None)
Quarter: 2011Q1

REPORT INFORMATION
  Report Type: 
  Country: None (occurrence: None)
  Receive Date: 20110317
  Receipt Date: 20110317
  Transmission Date: 20110831
  Serious: Yes (Life-Threatening, Other)
  Sender: FDA-Public Use
  Company Number: None

PATIENT
  Sex: Female
  Weight: 56.8 kg

DRUGS (2)
  1. STRATTERA [Suspect]
     Indication: ATTENTION DEFICIT/HYPERACTIVITY DISORDER
     Dosage: STRATTERA 60MG 1 PO QD ORAL
     Route: 048
     Dates: start: 20051220, end: 20110210
  2. LEXAPRO [Concomitant]

REACTIONS (3)
  - LIVER INJURY [None]
  - HEPATITIS [None]
  - INFLUENZA LIKE ILLNESS [None]
